FAERS Safety Report 24372221 (Version 2)
Quarter: 2024Q4

REPORT INFORMATION
  Report Type: Report from Study
  Country: JP (occurrence: JP)
  Receive Date: 20240927
  Receipt Date: 20241005
  Transmission Date: 20250115
  Serious: Yes (Death, Other)
  Sender: SHIONOGI
  Company Number: JP-shionogi-202400000473

PATIENT
  Age: 53 Year
  Sex: Female

DRUGS (4)
  1. CEFIDEROCOL [Suspect]
     Active Substance: CEFIDEROCOL
     Indication: Pyrexia
     Route: 042
     Dates: start: 2024
  2. CEFIDEROCOL [Suspect]
     Active Substance: CEFIDEROCOL
     Indication: Diarrhoea
  3. AMIKACIN SULFATE [Concomitant]
     Active Substance: AMIKACIN SULFATE
     Indication: Pyrexia
     Route: 065
     Dates: start: 2024
  4. AMIKACIN SULFATE [Concomitant]
     Active Substance: AMIKACIN SULFATE
     Indication: Diarrhoea

REACTIONS (4)
  - Shock [Fatal]
  - Pyrexia [Unknown]
  - Ileus paralytic [Unknown]
  - Diarrhoea [Unknown]

NARRATIVE: CASE EVENT DATE: 20240101
